FAERS Safety Report 12791265 (Version 1)
Quarter: 2016Q3

REPORT INFORMATION
  Report Type: Spontaneous
  Country: US (occurrence: US)
  Receive Date: 20160928
  Receipt Date: 20160928
  Transmission Date: 20161109
  Serious: Yes (Hospitalization)
  Sender: FDA-Public Use
  Company Number: None

PATIENT
  Age: 77 Year
  Sex: Female

DRUGS (17)
  1. FUROSEMIDE. [Concomitant]
     Active Substance: FUROSEMIDE
  2. TRIAMHCTZ [Concomitant]
  3. METRONIDAZO [Concomitant]
  4. IBUPROFEN. [Concomitant]
     Active Substance: IBUPROFEN
  5. POLYETH GLYC [Concomitant]
     Active Substance: POLYETHYLENE GLYCOLS
  6. ESOMEPRA [Concomitant]
     Active Substance: ESOMEPRAZOLE
  7. ESZOPICLONE. [Concomitant]
     Active Substance: ESZOPICLONE
  8. EXEMESTANE. [Concomitant]
     Active Substance: EXEMESTANE
  9. CIPROFLOXINF [Concomitant]
  10. AZITHROMYCIN ANHYDROUS. [Concomitant]
     Active Substance: AZITHROMYCIN ANHYDROUS
  11. LETROZOLE. [Concomitant]
     Active Substance: LETROZOLE
  12. ESCITALOPRAM [Concomitant]
     Active Substance: ESCITALOPRAM OXALATE
  13. IBRANCE [Suspect]
     Active Substance: PALBOCICLIB
     Indication: BREAST CANCER
     Dosage: 100MG BC21 PO
     Route: 048
     Dates: start: 201601, end: 201609
  14. LOSARTAN. [Concomitant]
     Active Substance: LOSARTAN
  15. CYANOCOBALAM [Concomitant]
  16. POT CL MICRO [Concomitant]
  17. LEVOTHYROXIN [Concomitant]
     Active Substance: LEVOTHYROXINE

REACTIONS (2)
  - Gastrointestinal pain [None]
  - Therapy change [None]

NARRATIVE: CASE EVENT DATE: 2016
